FAERS Safety Report 8143977-3 (Version None)
Quarter: 2012Q1

REPORT INFORMATION
  Report Type: 
  Country: None (occurrence: None)
  Receive Date: 20120217
  Receipt Date: 20120217
  Transmission Date: 20120608
  Serious: Yes (Other)
  Sender: FDA-Public Use
  Company Number: None

PATIENT
  Age: 30 Year
  Sex: Female
  Weight: 61.234 kg

DRUGS (1)
  1. PRISTIQ [Suspect]
     Indication: DEPRESSION
     Dosage: 50.0 MG
     Route: 048
     Dates: start: 20110801, end: 20120211

REACTIONS (13)
  - HEADACHE [None]
  - THINKING ABNORMAL [None]
  - TREMOR [None]
  - PARAESTHESIA [None]
  - PAIN [None]
  - HYPERHIDROSIS [None]
  - DIARRHOEA [None]
  - ACTIVITIES OF DAILY LIVING IMPAIRED [None]
  - NAUSEA [None]
  - CRYING [None]
  - FEELING OF BODY TEMPERATURE CHANGE [None]
  - VOMITING [None]
  - DRUG WITHDRAWAL SYNDROME [None]
